FAERS Safety Report 26073765 (Version 1)
Quarter: 2025Q4

REPORT INFORMATION
  Report Type: Spontaneous
  Country: KR (occurrence: KR)
  Receive Date: 20251121
  Receipt Date: 20251121
  Transmission Date: 20260118
  Serious: Yes (Other)
  Sender: AMGEN
  Company Number: KR-AMGEN-KORSP2025228404

PATIENT

DRUGS (1)
  1. ETANERCEPT [Suspect]
     Active Substance: ETANERCEPT
     Indication: Rheumatoid arthritis
     Dosage: UNK
     Route: 065

REACTIONS (12)
  - Rheumatoid arthritis [Unknown]
  - Skin necrosis [Unknown]
  - Ankle fracture [Recovered/Resolved]
  - Postoperative wound infection [Unknown]
  - Peroneal nerve injury [Unknown]
  - Extraskeletal ossification [Unknown]
  - Ankle impingement [Unknown]
  - Impaired healing [Unknown]
  - Arthralgia [Unknown]
  - Gait disturbance [Unknown]
  - Post procedural complication [Unknown]
  - Implant subsidence [Unknown]
